FAERS Safety Report 8769695 (Version 2)
Quarter: 2012Q4

REPORT INFORMATION
  Report Type: 
  Country: US (occurrence: US)
  Receive Date: 20120905
  Receipt Date: 20120920
  Transmission Date: 20130627
  Serious: Yes (Hospitalization, Other)
  Sender: FDA-Public Use
  Company Number: US-009507513-1208USA011778

PATIENT
  Sex: Female

DRUGS (3)
  1. PEGINTRON [Suspect]
     Indication: HEPATITIS C
     Dosage: UNK
     Dates: start: 20120720, end: 20120817
  2. REBETOL [Suspect]
     Indication: HEPATITIS C
     Dosage: UNK
     Dates: start: 20120721, end: 20120817
  3. TELAPREVIR [Concomitant]
     Indication: HEPATITIS C
     Dosage: UNK
     Dates: start: 20120721, end: 20120817

REACTIONS (10)
  - Haemorrhage [Unknown]
  - Haemoglobin decreased [Unknown]
  - Hordeolum [Unknown]
  - Scab [Unknown]
  - Ocular hyperaemia [Unknown]
  - Oropharyngeal pain [Unknown]
  - Somnolence [Unknown]
  - Aphagia [Unknown]
  - Pallor [Unknown]
  - White blood cell count decreased [Unknown]
